FAERS Safety Report 5269432-6 (Version None)
Quarter: 2007Q1

REPORT INFORMATION
  Report Type: 
  Country: None (occurrence: None)
  Receive Date: 20070320
  Receipt Date: 20070308
  Transmission Date: 20070707
  Serious: Yes (Hospitalization, Other)
  Sender: FDA-Public Use
  Company Number: US-JNJFOC-20070302183

PATIENT
  Sex: Female
  Weight: 22.88 kg

DRUGS (5)
  1. INFLIXIMAB [Suspect]
     Indication: COLITIS ULCERATIVE
     Route: 042
  2. 5-ASA [Concomitant]
     Indication: COLITIS ULCERATIVE
     Route: 048
  3. 6 MP [Concomitant]
     Indication: COLITIS ULCERATIVE
  4. METRONIDAZOLE [Concomitant]
  5. CIPRO [Concomitant]

REACTIONS (4)
  - COLITIS ULCERATIVE [None]
  - CONDITION AGGRAVATED [None]
  - NO THERAPEUTIC RESPONSE [None]
  - SYNCOPE [None]
